FAERS Safety Report 5975691-4 (Version None)
Quarter: 2008Q4

REPORT INFORMATION
  Report Type: 
  Country: None (occurrence: None)
  Receive Date: 20081202
  Receipt Date: 20081128
  Transmission Date: 20090506
  Serious: Yes (Life-Threatening, Other)
  Sender: FDA-Public Use
  Company Number: PHHY2008GB29952

PATIENT
  Age: 67 Year
  Sex: Female

DRUGS (2)
  1. TERBINAFINE HCL [Suspect]
     Indication: NAIL INFECTION
     Dosage: 250 MG, QD
     Dates: start: 20080714
  2. ALENDRONATE SODIUM [Concomitant]
     Dosage: 70 MG, UNK
     Route: 048

REACTIONS (1)
  - HYPERCALCAEMIA [None]
